FAERS Safety Report 18163880 (Version 1)
Quarter: 2020Q3

REPORT INFORMATION
  Report Type: Spontaneous
  Country: US (occurrence: US)
  Receive Date: 20200818
  Receipt Date: 20200818
  Transmission Date: 20201103
  Serious: No
  Sender: FDA-Public Use
  Company Number: US-OTSUKA-2019_015303

PATIENT
  Age: 18 Year
  Sex: Female
  Weight: 40.82 kg

DRUGS (1)
  1. ABILIFY MAINTENA [Suspect]
     Active Substance: ARIPIPRAZOLE
     Indication: BIPOLAR I DISORDER
     Dosage: 160 MG, UNK
     Route: 065

REACTIONS (2)
  - Product use issue [Unknown]
  - Prescribed underdose [Unknown]
